FAERS Safety Report 5065196-X (Version None)
Quarter: 2006Q3

REPORT INFORMATION
  Report Type: 
  Country: None (occurrence: None)
  Receive Date: 20060703
  Receipt Date: 20050623
  Transmission Date: 20061208
  Serious: Yes (Other)
  Sender: FDA-Public Use
  Company Number: WAES 0506USA03500

PATIENT
  Sex: Female

DRUGS (1)
  1. HYZAAR [Suspect]
     Indication: HYPERTENSION
     Dosage: 50-12.5 MG/DAILY/PO
     Route: 048

REACTIONS (1)
  - CEREBROVASCULAR ACCIDENT [None]
